FAERS Safety Report 7637070-3 (Version None)
Quarter: 2011Q3

REPORT INFORMATION
  Report Type: 
  Country: None (occurrence: None)
  Receive Date: 20110726
  Receipt Date: 20101207
  Transmission Date: 20111222
  Serious: No
  Sender: FDA-Public Use
  Company Number: US-MYLANLABS-2010S1022697

PATIENT

DRUGS (1)
  1. PAROXETINE HCL [Suspect]
     Route: 064
     Dates: end: 20090501

REACTIONS (2)
  - MATERNAL EXPOSURE DURING PREGNANCY [None]
  - NO ADVERSE EVENT [None]
